FAERS Safety Report 23197147 (Version 1)
Quarter: 2023Q4

REPORT INFORMATION
  Report Type: Spontaneous
  Country: US (occurrence: US)
  Receive Date: 20231117
  Receipt Date: 20231117
  Transmission Date: 20240110
  Serious: No
  Sender: FDA-Public Use
  Company Number: US-VIIV HEALTHCARE LIMITED-US2023AMR155202

PATIENT
  Age: 22 Year
  Sex: Male

DRUGS (3)
  1. CABOTEGRAVIR [Suspect]
     Active Substance: CABOTEGRAVIR
     Indication: Prophylaxis against HIV infection
     Dosage: 600 MG, Q2M
     Route: 030
     Dates: start: 20221103, end: 20231108
  2. CABOTEGRAVIR [Suspect]
     Active Substance: CABOTEGRAVIR
  3. CABOTEGRAVIR [Suspect]
     Active Substance: CABOTEGRAVIR

REACTIONS (7)
  - Muscular weakness [Unknown]
  - Gait inability [Unknown]
  - Headache [Unknown]
  - Mood swings [Unknown]
  - Nausea [Unknown]
  - Pain in extremity [Unknown]
  - Migraine [Unknown]

NARRATIVE: CASE EVENT DATE: 20221103
